FAERS Safety Report 5110236-2 (Version None)
Quarter: 2006Q3

REPORT INFORMATION
  Report Type: 
  Country: None (occurrence: None)
  Receive Date: 20060731
  Receipt Date: 20060626
  Transmission Date: 20061208
  Serious: No
  Sender: FDA-Public Use
  Company Number: 2006PV016446

PATIENT
  Age: 35 Year
  Sex: Female
  Weight: 113.3993 kg

DRUGS (6)
  1. BYETTA [Suspect]
     Indication: DIABETES MELLITUS NON-INSULIN-DEPENDENT
     Dosage: SEE IMAGE
     Route: 058
     Dates: start: 20060503, end: 20060602
  2. BYETTA [Suspect]
     Indication: DIABETES MELLITUS NON-INSULIN-DEPENDENT
     Dosage: SEE IMAGE
     Route: 058
     Dates: start: 20060603
  3. ACTOS [Concomitant]
  4. METFORMIN HCL [Concomitant]
  5. GLUCOVANCE [Concomitant]
  6. ALTACE [Concomitant]

REACTIONS (11)
  - ARTHRALGIA [None]
  - BLOOD GLUCOSE DECREASED [None]
  - CARDIAC FLUTTER [None]
  - CHEST PAIN [None]
  - COLD SWEAT [None]
  - DIZZINESS [None]
  - FATIGUE [None]
  - FEELING ABNORMAL [None]
  - FEELING JITTERY [None]
  - NECK PAIN [None]
  - TREMOR [None]
